FAERS Safety Report 19009965 (Version 1)
Quarter: 2021Q1

REPORT INFORMATION
  Report Type: Spontaneous
  Country: US (occurrence: US)
  Receive Date: 20210316
  Receipt Date: 20210316
  Transmission Date: 20210420
  Serious: No
  Sender: FDA-Public Use
  Company Number: US-AJANTA PHARMA USA INC.-2108017

PATIENT

DRUGS (1)
  1. ALMOTRIPTAN. [Suspect]
     Active Substance: ALMOTRIPTAN

REACTIONS (1)
  - Chest pain [Unknown]
